FAERS Safety Report 5580536-0 (Version None)
Quarter: 2007Q4

REPORT INFORMATION
  Report Type: 
  Country: None (occurrence: None)
  Receive Date: 20071231
  Receipt Date: 20071231
  Transmission Date: 20080405
  Serious: Yes (Hospitalization)
  Sender: FDA-Public Use
  Company Number: None

PATIENT
  Sex: Male
  Weight: 85.9 kg

DRUGS (4)
  1. BEVACIZUMAB    GENENTECH [Suspect]
     Indication: MALIGNANT GLIOMA
     Dosage: 10 MG/K   Q 2 WEEKS  IV
     Route: 042
     Dates: start: 20071029
  2. ETOPOSIDE [Suspect]
     Indication: MALIGNANT GLIOMA
     Dosage: 100 MG  QDX 21DAYS/CYCLE  PO
     Route: 048
     Dates: start: 20071029
  3. PAXIL [Concomitant]
  4. KEPPRA [Concomitant]

REACTIONS (1)
  - CONVULSION [None]
